APPROVED DRUG PRODUCT: SPRYCEL
Active Ingredient: DASATINIB
Strength: 140MG
Dosage Form/Route: TABLET;ORAL
Application: N021986 | Product #006 | TE Code: AB
Applicant: BRISTOL MYERS SQUIBB CO
Approved: Oct 28, 2010 | RLD: Yes | RS: No | Type: RX

PATENTS:
Patent 7491725 | Expires: Mar 28, 2026
Patent 7491725*PED | Expires: Sep 28, 2026

EXCLUSIVITY:
Code: PED | Date: Jun 21, 2026
Code: ODE-225 | Date: Dec 21, 2025